FAERS Safety Report 9454536 (Version 2)
Quarter: 2013Q3

REPORT INFORMATION
  Report Type: Report from Study
  Country: GB (occurrence: GB)
  Receive Date: 20130812
  Receipt Date: 20130904
  Transmission Date: 20140515
  Serious: Yes (Hospitalization)
  Sender: FDA-Public Use
  Company Number: GB-GLAXOSMITHKLINE-B0914572A

PATIENT
  Sex: Male
  Weight: 77 kg

DRUGS (13)
  1. PAZOPANIB [Suspect]
     Indication: RENAL CELL CARCINOMA
     Dosage: 800MG PER DAY
     Route: 048
     Dates: start: 20130517
  2. INDAPAMIDE [Concomitant]
     Indication: HYPERTENSION
     Dosage: 2.5MG PER DAY
     Route: 048
     Dates: start: 20130712
  3. AMLODIPINE [Concomitant]
     Indication: HYPERTENSION
     Dates: start: 20130320
  4. ASPIRIN [Concomitant]
     Indication: THROMBOSIS PROPHYLAXIS
     Dosage: 75MG PER DAY
     Route: 048
     Dates: start: 2002
  5. BISOPROLOL [Concomitant]
     Indication: HYPERTENSION
  6. CO-DYDRAMOL [Concomitant]
     Indication: PAIN
     Route: 048
     Dates: start: 2012
  7. SENNA [Concomitant]
     Indication: CONSTIPATION
     Dosage: 7.5MG AS REQUIRED
     Route: 048
     Dates: start: 201301
  8. OMEPRAZOLE [Concomitant]
     Indication: PROPHYLAXIS
     Dosage: 20MG PER DAY
     Route: 048
  9. SIMVASTATIN [Concomitant]
     Indication: BLOOD CHOLESTEROL INCREASED
     Dosage: 40MG PER DAY
     Route: 048
     Dates: start: 2008
  10. METOCLOPRAMIDE [Concomitant]
     Indication: NAUSEA
  11. LACTULOSE [Concomitant]
     Indication: CONSTIPATION
  12. MOVICOL [Concomitant]
     Indication: CONSTIPATION
  13. LOPERAMIDE [Concomitant]
     Indication: DIARRHOEA

REACTIONS (1)
  - Hyperkalaemia [Recovered/Resolved]
